FAERS Safety Report 12700129 (Version 1)
Quarter: 2016Q3

REPORT INFORMATION
  Report Type: Spontaneous
  Country: US (occurrence: US)
  Receive Date: 20160830
  Receipt Date: 20160830
  Transmission Date: 20161109
  Serious: Yes (Life-Threatening, Hospitalization, Other)
  Sender: FDA-Public Use
  Company Number: US-ENDO PHARMACEUTICALS INC.-2016-005262

PATIENT
  Age: 31 Year
  Sex: Male

DRUGS (8)
  1. BUSPIRONE HCL [Suspect]
     Active Substance: BUSPIRONE HYDROCHLORIDE
     Indication: ANXIETY
     Dosage: HALF TABLET (5MG) IN THE MORNING AND FULL TABLET (10MG) IN THE EVENING
     Route: 048
     Dates: start: 20160707, end: 20160724
  2. BENADRYL [Suspect]
     Active Substance: DIPHENHYDRAMINE HYDROCHLORIDE
     Indication: PRODUCT USED FOR UNKNOWN INDICATION
     Route: 065
     Dates: start: 20160721, end: 20160721
  3. TYLENOL [Suspect]
     Active Substance: ACETAMINOPHEN
     Indication: PRODUCT USED FOR UNKNOWN INDICATION
     Route: 065
     Dates: start: 20160721, end: 20160721
  4. SERTRALINE HCL [Suspect]
     Active Substance: SERTRALINE HYDROCHLORIDE
     Indication: PRODUCT USED FOR UNKNOWN INDICATION
     Route: 065
     Dates: start: 2012, end: 20160721
  5. MELATONIN [Suspect]
     Active Substance: MELATONIN
     Indication: PRODUCT USED FOR UNKNOWN INDICATION
     Route: 065
     Dates: start: 20160721, end: 20160721
  6. BUSPIRONE HCL [Suspect]
     Active Substance: BUSPIRONE HYDROCHLORIDE
     Dosage: 5MG IN THE MORNING AND 10MG IN THE EVENING
     Route: 048
     Dates: start: 20160725
  7. IBUPROFEN TABLETS [Suspect]
     Active Substance: IBUPROFEN
     Indication: PRODUCT USED FOR UNKNOWN INDICATION
     Route: 065
     Dates: start: 20160721, end: 20160721
  8. BUPROPION HYDROCHLORIDE SR [Suspect]
     Active Substance: BUPROPION HYDROCHLORIDE
     Indication: DEPRESSION
     Route: 048
     Dates: start: 20160721

REACTIONS (3)
  - Intentional overdose [Recovered/Resolved]
  - Hepatic enzyme increased [Not Recovered/Not Resolved]
  - Suicide attempt [Recovered/Resolved]

NARRATIVE: CASE EVENT DATE: 20160721
